FAERS Safety Report 9314552 (Version 1)
Quarter: 2013Q2

REPORT INFORMATION
  Report Type: Spontaneous
  Country: FR (occurrence: FR)
  Receive Date: 20130529
  Receipt Date: 20130529
  Transmission Date: 20140414
  Serious: Yes (Other)
  Sender: FDA-Public Use
  Company Number: FR-TEVA-407722ISR

PATIENT
  Age: 52 Year
  Sex: Female

DRUGS (2)
  1. AZITHROMYCINE TEVA 250 MG TABLET [Suspect]
     Indication: TONSILLITIS
     Route: 048
  2. AZITHROMYCINE TEVA 250 MG TABLET [Suspect]
     Indication: TOOTH ABSCESS

REACTIONS (1)
  - Angina pectoris [Unknown]
